FAERS Safety Report 6453953-4 (Version None)
Quarter: 2009Q4

REPORT INFORMATION
  Report Type: 
  Country: None (occurrence: None)
  Receive Date: 20091124
  Receipt Date: 20091112
  Transmission Date: 20100525
  Serious: Yes (Hospitalization)
  Sender: FDA-Public Use
  Company Number: RS-WYE-H11626209

PATIENT
  Sex: Male
  Weight: 87.5 kg

DRUGS (5)
  1. TEMSIROLIMUS [Suspect]
     Indication: RENAL CANCER
     Route: 042
     Dates: start: 20090306, end: 20091014
  2. TEMSIROLIMUS [Suspect]
     Route: 042
     Dates: start: 20091101
  3. FERRIC HYDROXIDE [Concomitant]
     Indication: IRON DEFICIENCY ANAEMIA
     Dosage: NOT PROVIDED
     Route: 065
     Dates: start: 20090701, end: 20091014
  4. ASCORBIC ACID [Concomitant]
     Indication: IRON DEFICIENCY ANAEMIA
     Dosage: NOT PROVIDED
     Route: 065
     Dates: start: 20090701
  5. BEVACIZUMAB [Concomitant]
     Indication: RENAL CANCER
     Route: 042
     Dates: start: 20090306, end: 20091014

REACTIONS (1)
  - PNEUMONITIS [None]
